FAERS Safety Report 20443067 (Version 1)
Quarter: 2022Q1

REPORT INFORMATION
  Report Type: Spontaneous
  Country: US (occurrence: US)
  Receive Date: 20220208
  Receipt Date: 20220208
  Transmission Date: 20220423
  Serious: Yes (Other)
  Sender: FDA-Public Use
  Company Number: US-COLGATE PALMOLIVE COMPANY-20210801743

PATIENT
  Age: 68 Year
  Sex: Female
  Weight: 83.447 kg

DRUGS (1)
  1. COLGATE OPTIC WHITE RENEWAL HIGH IMPACT WHITE [Suspect]
     Active Substance: SODIUM MONOFLUOROPHOSPHATE
     Dosage: UNKNOWN DOSE, BID
     Dates: start: 20210801, end: 20210802

REACTIONS (5)
  - Anaphylactic shock [Recovered/Resolved]
  - Rhinitis allergic [Recovered/Resolved]
  - Asthma [Recovered/Resolved]
  - Vasomotor rhinitis [Recovered/Resolved]
  - Stomatitis [Recovered/Resolved]

NARRATIVE: CASE EVENT DATE: 20210803
